FAERS Safety Report 9493859 (Version 1)
Quarter: 2013Q3

REPORT INFORMATION
  Report Type: Report from Study
  Country: PL (occurrence: PL)
  Receive Date: 20130902
  Receipt Date: 20130902
  Transmission Date: 20140515
  Serious: Yes (Other)
  Sender: FDA-Public Use
  Company Number: PHHY2013PL088058

PATIENT
  Sex: 0
  Weight: 81 kg

DRUGS (5)
  1. SANDOSTATIN LAR [Suspect]
     Indication: ACROMEGALY
     Dosage: 30 MG, UNK
     Route: 030
     Dates: start: 20120912
  2. SANDOSTATIN LAR [Suspect]
     Dosage: 30 UNK, UNK
     Route: 030
     Dates: start: 20121010
  3. SANDOSTATIN LAR [Suspect]
     Dosage: 30 UNK, UNK
     Route: 030
     Dates: start: 20121107
  4. EUTHYROX [Concomitant]
     Dosage: UNK UKN, UNK
  5. EUTHYROX [Concomitant]
     Dosage: UNK UKN, UNK

REACTIONS (5)
  - Hyperthyroidism [Unknown]
  - Swelling [Unknown]
  - Arthralgia [Unknown]
  - Snoring [Unknown]
  - Blood thyroid stimulating hormone decreased [Unknown]
